FAERS Safety Report 7082272-0 (Version None)
Quarter: 2010Q4

REPORT INFORMATION
  Report Type: 
  Country: None (occurrence: None)
  Receive Date: 20101104
  Receipt Date: 20101028
  Transmission Date: 20110411
  Serious: Yes (Hospitalization)
  Sender: FDA-Public Use
  Company Number: US-BIOGENIDEC-2010BI037594

PATIENT
  Age: 35 Year
  Sex: Female
  Weight: 77 kg

DRUGS (6)
  1. TYSABRI [Suspect]
     Indication: CROHN'S DISEASE
     Route: 042
     Dates: start: 20091230
  2. LEXAPRO [Concomitant]
     Indication: DEPRESSION
     Route: 048
     Dates: start: 20070101
  3. ATIVAN [Concomitant]
     Indication: ANXIETY
     Route: 048
     Dates: start: 20090101
  4. SEROQUEL [Concomitant]
     Indication: DEPRESSION
     Route: 048
     Dates: start: 20070101
  5. NASCOBAL [Concomitant]
     Indication: VITAMIN B12 DEFICIENCY
     Dosage: DOSE UNIT:500
     Route: 045
     Dates: start: 20081001
  6. NASCOBAL [Concomitant]

REACTIONS (2)
  - FEMALE GENITAL TRACT FISTULA [None]
  - INCISIONAL HERNIA [None]
